FAERS Safety Report 24005248 (Version 1)
Quarter: 2024Q2

REPORT INFORMATION
  Report Type: Report from Study
  Country: IT (occurrence: IT)
  Receive Date: 20240624
  Receipt Date: 20240624
  Transmission Date: 20240715
  Serious: Yes (Other)
  Sender: FDA-Public Use
  Company Number: None

PATIENT
  Age: 8 Year
  Sex: Male
  Weight: 28 kg

DRUGS (2)
  1. METHOTREXATE [Suspect]
     Active Substance: METHOTREXATE
     Indication: Extraskeletal osteosarcoma
     Dosage: 11,628.00 MG INFUSION IN 750 ML OVER 240 MIN. ON 08 AND 15/04/2024, METHOTREXATE TEVA
     Route: 042
     Dates: start: 20240408, end: 20240415
  2. LEVOLEUCOVORIN CALCIUM [Concomitant]
     Active Substance: LEVOLEUCOVORIN CALCIUM
     Indication: Drug toxicity prophylaxis
     Dosage: 7.5 MG (7 ADMINISTRATIONS PER CYCLE) FROM 10/04 TO 12/04/2024?FROM 17/04 TO 19/04/2024
     Route: 042
     Dates: start: 20240410, end: 20240419

REACTIONS (4)
  - Neutropenia [Not Recovered/Not Resolved]
  - Alanine aminotransferase increased [Recovered/Resolved]
  - Diarrhoea [Recovered/Resolved]
  - Alopecia [Not Recovered/Not Resolved]

NARRATIVE: CASE EVENT DATE: 20240410
